FAERS Safety Report 26028208 (Version 1)
Quarter: 2025Q4

REPORT INFORMATION
  Report Type: Spontaneous
  Country: US (occurrence: US)
  Receive Date: 20251111
  Receipt Date: 20251111
  Transmission Date: 20260118
  Serious: No
  Sender: OPTINOSE INC
  Company Number: US-OptiNose US, Inc-2024OPT000162

PATIENT
  Age: 39 Year
  Sex: Male

DRUGS (2)
  1. XHANCE [Suspect]
     Active Substance: FLUTICASONE PROPIONATE
     Indication: Ear inflammation
     Dosage: 372 MICROGRAM, BID
     Route: 045
     Dates: start: 20241110
  2. DEVICE [Suspect]
     Active Substance: DEVICE
     Indication: Ear inflammation
     Dosage: UNK UNK

REACTIONS (2)
  - Blood glucose increased [Unknown]
  - Off label use [Unknown]

NARRATIVE: CASE EVENT DATE: 20241110
